FAERS Safety Report 25088999 (Version 2)
Quarter: 2025Q1

REPORT INFORMATION
  Report Type: Spontaneous
  Country: US (occurrence: US)
  Receive Date: 20250318
  Receipt Date: 20250319
  Transmission Date: 20250409
  Serious: Yes (Hospitalization, Disabling)
  Sender: PFIZER
  Company Number: US-PFIZER INC-PV202500032359

PATIENT
  Age: 56 Year
  Sex: Male

DRUGS (1)
  1. LORBRENA [Suspect]
     Active Substance: LORLATINIB

REACTIONS (5)
  - Cerebral disorder [Unknown]
  - Confusional state [Unknown]
  - Gait inability [Unknown]
  - Mutism [Unknown]
  - Disturbance in attention [Unknown]
